FAERS Safety Report 9363416 (Version 1)
Quarter: 2013Q2

REPORT INFORMATION
  Report Type: Spontaneous
  Country: US (occurrence: US)
  Receive Date: 20130624
  Receipt Date: 20130624
  Transmission Date: 20140414
  Serious: No
  Sender: FDA-Public Use
  Company Number: US-009507513-1306USA007603

PATIENT
  Age: 59 Year
  Sex: Male

DRUGS (2)
  1. PEG-INTRON [Suspect]
     Indication: HEPATITIS C
     Dosage: REDIPEN
     Dates: start: 20130614
  2. REBETOL [Suspect]
     Indication: HEPATITIS C
     Dosage: UNK
     Dates: start: 20130614

REACTIONS (9)
  - Eye disorder [Unknown]
  - Musculoskeletal disorder [Unknown]
  - Chills [Unknown]
  - Malaise [Unknown]
  - Influenza like illness [Unknown]
  - Decreased appetite [Unknown]
  - Insomnia [Unknown]
  - Myalgia [Unknown]
  - Insomnia [Unknown]
